FAERS Safety Report 22690781 (Version 2)
Quarter: 2023Q4

REPORT INFORMATION
  Report Type: Spontaneous
  Country: NO (occurrence: NO)
  Receive Date: 20230711
  Receipt Date: 20231220
  Transmission Date: 20240110
  Serious: Yes (Hospitalization, Other)
  Sender: FDA-Public Use
  Company Number: NO-ASTELLAS-2023US020191

PATIENT
  Age: 73 Year
  Sex: Male

DRUGS (1)
  1. XTANDI [Suspect]
     Active Substance: ENZALUTAMIDE
     Indication: Product used for unknown indication
     Dosage: UNK UNK, UNKNOWN FREQ.
     Route: 065
     Dates: start: 202109, end: 20230627

REACTIONS (4)
  - Epilepsy [Recovered/Resolved]
  - Syncope [Recovered/Resolved]
  - Orthostatic hypotension [Unknown]
  - Epilepsy [Unknown]

NARRATIVE: CASE EVENT DATE: 20230527
